FAERS Safety Report 9665770 (Version 1)
Quarter: 2013Q4

REPORT INFORMATION
  Report Type: Spontaneous
  Country: JP (occurrence: JP)
  Receive Date: 20131104
  Receipt Date: 20131104
  Transmission Date: 20140711
  Serious: No
  Sender: FDA-Public Use
  Company Number: JP-ELI_LILLY_AND_COMPANY-JP201310008014

PATIENT
  Age: 85 Year
  Sex: Female

DRUGS (4)
  1. GEMZAR [Suspect]
     Indication: PANCREATIC CARCINOMA STAGE IV
     Dosage: 1000 MG/M2, OTHER
     Route: 042
  2. GEMZAR [Suspect]
     Dosage: 800 MG/M2, OTHER
     Route: 042
  3. GEMZAR [Suspect]
     Dosage: 160 MG/M2, OTHER
     Route: 042
  4. GEMZAR [Suspect]
     Dosage: 320 MG/M2, OTHER
     Route: 042

REACTIONS (1)
  - Liver disorder [Unknown]
